FAERS Safety Report 11276255 (Version 1)
Quarter: 2015Q3

REPORT INFORMATION
  Report Type: Spontaneous
  Country: US (occurrence: None)
  Receive Date: 20150715
  Receipt Date: 20150715
  Transmission Date: 20151125
  Serious: Yes (Disabling)
  Sender: FDA-Public Use
  Company Number: None

PATIENT
  Age: 79 Year
  Sex: Female
  Weight: 101.15 kg

DRUGS (7)
  1. VITAMIN D [Concomitant]
     Active Substance: CHOLECALCIFEROL
  2. VITAMIN B12 [Concomitant]
     Active Substance: CYANOCOBALAMIN
  3. PENNSAID [Suspect]
     Active Substance: DICLOFENAC SODIUM
  4. BLOOD THINNER VESICARE [Concomitant]
  5. DIABETIC MONITER [Concomitant]
  6. GENERIC FOR BLOOD PRESSURE [Concomitant]
  7. WOMAN^S ONE A DAY [Concomitant]

REACTIONS (6)
  - Fatigue [None]
  - Nausea [None]
  - Flatulence [None]
  - Decreased appetite [None]
  - Abdominal pain upper [None]
  - Diarrhoea [None]

NARRATIVE: CASE EVENT DATE: 201506
